FAERS Safety Report 6241950-3 (Version None)
Quarter: 2009Q2

REPORT INFORMATION
  Report Type: 
  Country: None (occurrence: None)
  Receive Date: 20090622
  Receipt Date: 20090605
  Transmission Date: 20091009
  Serious: Yes (Hospitalization)
  Sender: FDA-Public Use
  Company Number: 2009SP001461

PATIENT
  Sex: Female

DRUGS (6)
  1. XOPENEX            (LEVALBUTEROL HCL)   (1.25 MG/3ML) [Suspect]
     Indication: ASTHMA
     Dosage: 1.25 MG/3ML; ; INHALATION, 0.63 MG/3ML; ; INHALATION
     Route: 055
     Dates: start: 20090101
  2. PREDNISONE [Concomitant]
  3. VASOTEC [Concomitant]
  4. SYNTHROID [Concomitant]
  5. STARLIX [Concomitant]
  6. ALBUTEROL [Concomitant]

REACTIONS (2)
  - PALPITATIONS [None]
  - TREMOR [None]
